FAERS Safety Report 10676469 (Version 1)
Quarter: 2014Q4

REPORT INFORMATION
  Report Type: Spontaneous
  Country: US (occurrence: None)
  Receive Date: 20141223
  Receipt Date: 20141223
  Transmission Date: 20150529
  Serious: No
  Sender: FDA-Public Use
  Company Number: None

PATIENT
  Age: 51 Year
  Sex: Female

DRUGS (4)
  1. HDBARIUM [Suspect]
     Active Substance: BARIUM SULFATE
  2. EZ PAQUE [Suspect]
     Active Substance: BARIUM SULFATE
  3. E-Z-DISK [Suspect]
     Active Substance: BARIUM SULFATE
  4. EZGAS [Suspect]
     Active Substance: CITRIC ACID MONOHYDRATE\DIMETHICONE\SODIUM BICARBONATE

REACTIONS (1)
  - Urticaria [None]

NARRATIVE: CASE EVENT DATE: 20141222
